FAERS Safety Report 9070504 (Version 5)
Quarter: 2014Q1

REPORT INFORMATION
  Report Type: Spontaneous
  Country: US (occurrence: US)
  Receive Date: 20130215
  Receipt Date: 20140304
  Transmission Date: 20141002
  Serious: Yes (Death, Hospitalization)
  Sender: FDA-Public Use
  Company Number: US-B.I. PHARMACEUTICALS,INC./RIDGEFIELD-2013-BI-03939BP

PATIENT
  Age: 82 Year
  Sex: Female
  Weight: 45.36 kg

DRUGS (7)
  1. PRADAXA [Suspect]
     Indication: ATRIAL FIBRILLATION
     Dosage: 300 MG
     Route: 065
     Dates: start: 20101226, end: 20110131
  2. SIMVASTATIN [Concomitant]
     Dosage: 20 MG
     Route: 065
  3. DIOVAN [Concomitant]
     Dosage: 80 MG
     Route: 065
  4. METOPROLOL [Concomitant]
     Dosage: 100 MG
     Route: 048
  5. ASPIRIN [Concomitant]
     Route: 065
  6. ALDACTONE [Concomitant]
     Dosage: 25 MG
     Route: 065
  7. OMEPRAZOLE [Concomitant]
     Dosage: 20 MG
     Route: 065

REACTIONS (2)
  - Gastrointestinal haemorrhage [Fatal]
  - Cardiomyopathy [Unknown]
